FAERS Safety Report 6035369-8 (Version None)
Quarter: 2009Q1

REPORT INFORMATION
  Report Type: 
  Country: None (occurrence: None)
  Receive Date: 20090109
  Receipt Date: 20090109
  Transmission Date: 20090719
  Serious: Yes (Disabling)
  Sender: FDA-Public Use
  Company Number: None

PATIENT
  Sex: Male

DRUGS (12)
  1. ZOMETA [Suspect]
     Dosage: 4 MG MONTHLY IV 2005
     Route: 042
  2. PILOCARPINE [Concomitant]
  3. BETOTOPIC S [Concomitant]
  4. TRUSOFT [Concomitant]
  5. TRAVATAN [Concomitant]
  6. COUMADIN [Concomitant]
  7. DEXAMETHASONE [Concomitant]
  8. CHLORHEXIDINE GLUCONATE [Concomitant]
  9. FINASTERIDE [Concomitant]
  10. TAMSULOSIN HCL [Concomitant]
  11. POTASSIUM CHLORIDE [Concomitant]
  12. EFUDEX [Concomitant]

REACTIONS (2)
  - JAW DISORDER [None]
  - OSTEOLYSIS [None]
